FAERS Safety Report 15963631 (Version 2)
Quarter: 2019Q1

REPORT INFORMATION
  Report Type: Spontaneous
  Country: DK (occurrence: DK)
  Receive Date: 20190214
  Receipt Date: 20190223
  Transmission Date: 20190417
  Serious: Yes (Life-Threatening, Hospitalization)
  Sender: FDA-Public Use
  Company Number: DK-MYLANLABS-2019M1013038

PATIENT
  Age: 62 Year
  Sex: Male

DRUGS (7)
  1. VASOPRESSIN. [Suspect]
     Active Substance: VASOPRESSIN
     Indication: HYPOTENSION
     Route: 065
  2. TERLIPRESSIN [Suspect]
     Active Substance: TERLIPRESSIN
  3. LOSARTAN. [Suspect]
     Active Substance: LOSARTAN
     Indication: PRODUCT USED FOR UNKNOWN INDICATION
     Route: 065
  4. INSULIN GLARGINE [Suspect]
     Active Substance: INSULIN GLARGINE
     Indication: HYPERGLYCAEMIA
     Route: 065
  5. SODIUM CHLORIDE. [Suspect]
     Active Substance: SODIUM CHLORIDE
     Indication: HYPOTENSION
     Route: 050
  6. EPINEPHRINE. [Suspect]
     Active Substance: EPINEPHRINE
     Indication: HYPOTENSION
     Dosage: UNK
     Route: 050
  7. NOREPINEPHRINE. [Suspect]
     Active Substance: NOREPINEPHRINE
     Indication: HYPOTENSION
     Dosage: UNK
     Route: 065

REACTIONS (6)
  - Hyperglycaemia [Recovered/Resolved]
  - Toxicity to various agents [Recovered/Resolved]
  - Metabolic acidosis [Recovered/Resolved]
  - Drug ineffective [Unknown]
  - Overdose [Recovered/Resolved]
  - Hypotension [Recovered/Resolved]
